FAERS Safety Report 8922208 (Version 1)
Quarter: 2012Q4

REPORT INFORMATION
  Report Type: 
  Country: JP (occurrence: JP)
  Receive Date: 20121126
  Receipt Date: 20121126
  Transmission Date: 20130627
  Serious: Yes (Death, Hospitalization)
  Sender: FDA-Public Use
  Company Number: JP-009507513-2008SP002501

PATIENT
  Age: 59 Year
  Sex: Female
  Weight: 58 kg

DRUGS (37)
  1. TEMOZOLOMIDE [Suspect]
     Indication: GLIOBLASTOMA MULTIFORME
     Dosage: 150 mg/m2, qd
     Route: 048
     Dates: start: 20061204, end: 20061208
  2. TEMOZOLOMIDE [Suspect]
     Dosage: 200 mg/m2, qd
     Route: 048
     Dates: start: 20070108, end: 20070112
  3. TEMOZOLOMIDE [Suspect]
     Dosage: 150 mg/m2, qd
     Route: 048
     Dates: start: 20070305, end: 20070309
  4. TEMOZOLOMIDE [Suspect]
     Dosage: 200 mg/m2, qd
     Route: 048
     Dates: start: 20070409, end: 20070413
  5. TEMOZOLOMIDE [Suspect]
     Dosage: 200 mg/m2, qd
     Route: 048
     Dates: start: 20070430, end: 20070504
  6. TEMOZOLOMIDE [Suspect]
     Dosage: 200 mg/m2, qd
     Route: 048
     Dates: start: 20070702, end: 20070706
  7. TEMOZOLOMIDE [Suspect]
     Dosage: 200 mg/m2, qd
     Route: 048
     Dates: start: 20070730, end: 20070803
  8. TEMOZOLOMIDE [Suspect]
     Dosage: 200 mg/m2, qd
     Route: 048
     Dates: start: 20070827, end: 20070831
  9. TEMOZOLOMIDE [Suspect]
     Dosage: 200 mg/m2, qd
     Route: 048
     Dates: start: 20071001, end: 20071005
  10. TEMOZOLOMIDE [Suspect]
     Dosage: 200 mg/m2, qd
     Route: 048
     Dates: start: 20071217, end: 20071221
  11. TEMOZOLOMIDE [Suspect]
     Dosage: 200 mg/m2, qd
     Route: 048
     Dates: start: 20080115, end: 20080119
  12. TEMOZOLOMIDE [Suspect]
     Dosage: 200 mg/m2, qd
     Route: 048
     Dates: start: 20080407, end: 20080411
  13. TEMOZOLOMIDE [Suspect]
     Dosage: 200 mg/m2, qd
     Route: 048
     Dates: start: 20080512, end: 20080516
  14. TEMOZOLOMIDE [Suspect]
     Dosage: 200 mg/m2, qd
     Route: 048
     Dates: start: 20080707, end: 20080711
  15. TEMOZOLOMIDE [Suspect]
     Dosage: 200 mg/m2, qd
     Route: 048
     Dates: start: 20080929, end: 20081003
  16. TEMOZOLOMIDE [Suspect]
     Dosage: 200 mg/m2, qd
     Route: 048
     Dates: start: 20081027, end: 20081031
  17. TEMOZOLOMIDE [Suspect]
     Dosage: 200 mg/m2, qd
     Route: 048
     Dates: start: 20081208, end: 20081212
  18. TEMOZOLOMIDE [Suspect]
     Dosage: 200 mg/m2, qd
     Route: 048
     Dates: start: 20090216, end: 20090220
  19. TEMOZOLOMIDE [Suspect]
     Dosage: 200 mg/m2, qd
     Route: 048
     Dates: start: 20090316, end: 20090320
  20. TEMOZOLOMIDE [Suspect]
     Dosage: 200 mg/m2, qd
     Route: 048
     Dates: start: 20090413, end: 20090417
  21. TEMOZOLOMIDE [Suspect]
     Dosage: 200 mg/m2, qd
     Route: 048
     Dates: start: 20090713, end: 20090717
  22. TEMOZOLOMIDE [Suspect]
     Dosage: 200 mg/m2, qd
     Route: 048
     Dates: start: 20090810, end: 20090814
  23. TEMOZOLOMIDE [Suspect]
     Dosage: 200 mg/m2, qd
     Route: 048
     Dates: start: 20091005, end: 20091009
  24. TEMOZOLOMIDE [Suspect]
     Dosage: 200 mg/m2, qd
     Route: 048
     Dates: start: 20091102, end: 20091106
  25. TEMOZOLOMIDE [Suspect]
     Dosage: 200 mg/m2, qd
     Route: 048
     Dates: start: 20091214, end: 20091218
  26. TEMOZOLOMIDE [Suspect]
     Dosage: 200 mg/m2, qd
     Route: 048
     Dates: start: 20100215, end: 20100219
  27. NASEA [Concomitant]
     Indication: PROPHYLAXIS
     Dosage: UNK
     Route: 048
     Dates: start: 20061201, end: 20100219
  28. CERCINE [Concomitant]
     Indication: PROPHYLAXIS
     Dosage: 2 mg, UNK
     Route: 048
     Dates: end: 20100428
  29. CERCINE [Concomitant]
     Dosage: 5 mg, UNK
     Route: 048
     Dates: start: 20061201, end: 20100219
  30. TEGRETOL [Concomitant]
     Dosage: UNK
     Route: 048
     Dates: start: 20050202, end: 20100428
  31. RINDERON (BETAMETHASONE) [Concomitant]
     Dosage: UNK
     Route: 048
     Dates: end: 20100721
  32. GASTER [Concomitant]
     Dosage: UNK
     Route: 048
     Dates: end: 20100721
  33. MAGNESIUM OXIDE [Concomitant]
     Dosage: UNK
     Route: 048
     Dates: end: 20100721
  34. PURSENNID (SENNOSIDES) [Concomitant]
     Dosage: UNK
     Route: 048
     Dates: start: 20090807, end: 20100721
  35. DEPAKENE [Concomitant]
     Dosage: UNK
     Route: 048
     Dates: start: 20100429, end: 20100721
  36. GASMOTIN [Concomitant]
     Dosage: UNK
     Route: 048
     Dates: start: 20100429, end: 20100721
  37. LAXOBERON [Concomitant]
     Dosage: UNK
     Route: 048
     Dates: start: 20100517, end: 20100721

REACTIONS (14)
  - Convulsion [Recovered/Resolved]
  - Disease progression [Fatal]
  - Fall [Recovered/Resolved]
  - Spinal compression fracture [Recovered/Resolved]
  - White blood cell count decreased [Recovering/Resolving]
  - Neutrophil count decreased [Recovered/Resolved]
  - Neutrophil count decreased [Recovered/Resolved]
  - Neutrophil count decreased [Recovered/Resolved]
  - Neutrophil count decreased [Recovered/Resolved]
  - Neutrophil count decreased [Recovered/Resolved]
  - Lymphocyte count decreased [Recovering/Resolving]
  - Neutrophil count decreased [Recovered/Resolved]
  - Neutrophil count decreased [Recovered/Resolved]
  - Neutrophil count decreased [Recovered/Resolved]
